FAERS Safety Report 11938794 (Version 2)
Quarter: 2016Q1

REPORT INFORMATION
  Report Type: Other
  Country: CH (occurrence: CH)
  Receive Date: 20160122
  Receipt Date: 20160225
  Transmission Date: 20160526
  Serious: Yes (Hospitalization, Disabling)
  Sender: FDA-Public Use
  Company Number: CH-GUERBET LLC-1046765

PATIENT
  Age: 54 Year
  Sex: Female

DRUGS (4)
  1. DOTAREM [Suspect]
     Active Substance: GADOTERATE MEGLUMINE
     Indication: NUCLEAR MAGNETIC RESONANCE IMAGING
     Route: 042
  2. EUTHYROX(LEVOTHYROXIN) [Concomitant]
  3. OMNISCAN [Suspect]
     Active Substance: GADODIAMIDE
  4. PROHANCE [Suspect]
     Active Substance: GADOTERIDOL

REACTIONS (5)
  - Disturbance in attention [Not Recovered/Not Resolved]
  - Medication residue present [Not Recovered/Not Resolved]
  - Aphasia [Not Recovered/Not Resolved]
  - Nephrogenic systemic fibrosis [Not Recovered/Not Resolved]
  - Nuclear magnetic resonance imaging abnormal [Not Recovered/Not Resolved]

NARRATIVE: CASE EVENT DATE: 200308
